FAERS Safety Report 9066790 (Version 1)
Quarter: 2013Q1

REPORT INFORMATION
  Report Type: Report from Study
  Country: US (occurrence: US)
  Receive Date: 20130131
  Receipt Date: 20130131
  Transmission Date: 20140127
  Serious: No
  Sender: FDA-Public Use
  Company Number: US-ABBOTT-12P-163-1016161-00

PATIENT
  Sex: Male
  Weight: 78.09 kg

DRUGS (4)
  1. HUMIRA [Suspect]
     Indication: PSORIASIS
     Route: 058
     Dates: start: 2007, end: 2007
  2. SYNTHROID [Concomitant]
     Indication: HYPOTHYROIDISM
  3. DOVONEX [Concomitant]
     Indication: PRODUCT USED FOR UNKNOWN INDICATION
  4. HALOBETASOL PROPIONATE [Concomitant]
     Indication: PRODUCT USED FOR UNKNOWN INDICATION

REACTIONS (1)
  - Drug ineffective [Unknown]
